FAERS Safety Report 10152074 (Version 1)
Quarter: 2014Q2

REPORT INFORMATION
  Report Type: Spontaneous
  Country: US (occurrence: US)
  Receive Date: 20140505
  Receipt Date: 20140505
  Transmission Date: 20141212
  Serious: No
  Sender: FDA-Public Use
  Company Number: US-BRISTOL-MYERS SQUIBB COMPANY-20347597

PATIENT
  Age: 55 Year
  Sex: Female

DRUGS (5)
  1. FARXIGA [Suspect]
  2. ASPIRIN [Concomitant]
  3. CALCIUM [Concomitant]
  4. KOMBIGLYZE XR [Concomitant]
     Dosage: 1DF:2.5/1000 UNIT NOS
  5. TRILIPIX [Concomitant]
     Dosage: 1DF: 135 UNIT NOS

REACTIONS (1)
  - Nausea [Unknown]
